FAERS Safety Report 9604827 (Version 2)
Quarter: 2013Q4

REPORT INFORMATION
  Report Type: Spontaneous
  Country: None (occurrence: US)
  Receive Date: 20131008
  Receipt Date: 20131106
  Transmission Date: 20140711
  Serious: Yes (Other)
  Sender: FDA-Public Use
  Company Number: US-TEVA-436951USA

PATIENT
  Age: 79 Year
  Sex: Female

DRUGS (13)
  1. AZILECT [Suspect]
     Route: 048
     Dates: end: 20130808
  2. SINEMET [Concomitant]
  3. PARCOPA [Concomitant]
  4. NAMENDA [Concomitant]
  5. CYPROHEPTADINE [Concomitant]
  6. LEXAPRO [Concomitant]
  7. SYNTHROID [Concomitant]
  8. VITAMIN D3 [Concomitant]
  9. TOVIAZ [Concomitant]
  10. BABY ASA [Concomitant]
  11. ROBINUL [Concomitant]
  12. LOSARTAN [Concomitant]
  13. CARVEDILOL [Concomitant]

REACTIONS (3)
  - Tongue movement disturbance [Recovered/Resolved]
  - Macroglossia [Recovered/Resolved]
  - Intentional drug misuse [Unknown]
